FAERS Safety Report 19977632 (Version 18)
Quarter: 2025Q3

REPORT INFORMATION
  Report Type: Report from Study
  Country: CA (occurrence: CA)
  Receive Date: 20211020
  Receipt Date: 20250926
  Transmission Date: 20251020
  Serious: Yes (Other)
  Sender: TAKEDA
  Company Number: CA-TAKEDA-2021TUS061356

PATIENT
  Sex: Female

DRUGS (29)
  1. VEDOLIZUMAB [Suspect]
     Active Substance: VEDOLIZUMAB
     Indication: Crohn^s disease
  2. VEDOLIZUMAB [Suspect]
     Active Substance: VEDOLIZUMAB
     Indication: Crohn^s disease
     Dosage: 108 MILLIGRAM, Q2WEEKS
     Dates: start: 20220407
  3. BISOPROLOL [Concomitant]
     Active Substance: BISOPROLOL
     Dosage: 5 MILLIGRAM, QD
  4. CLONAZEPAM [Concomitant]
     Active Substance: CLONAZEPAM
  5. LAMOTRIGINE [Concomitant]
     Active Substance: LAMOTRIGINE
     Dosage: 50 MILLIGRAM, QD
  6. NORTRIPTYLINE [Concomitant]
     Active Substance: NORTRIPTYLINE
     Dosage: 25 MILLIGRAM, QD
  7. PANTOPRAZOLE [Concomitant]
     Active Substance: PANTOPRAZOLE
     Dosage: 40 MILLIGRAM, BID
  8. SERTRALINE [Concomitant]
     Active Substance: SERTRALINE HYDROCHLORIDE
     Dosage: 100 MILLIGRAM, QD
  9. TRAZODONE [Concomitant]
     Active Substance: TRAZODONE HYDROCHLORIDE
     Dosage: 150 MILLIGRAM, QD
  10. NITROGLYCERIN [Concomitant]
     Active Substance: NITROGLYCERIN
  11. ALBUTEROL [Concomitant]
     Active Substance: ALBUTEROL
  12. ENTOCORT [Concomitant]
     Active Substance: BUDESONIDE
     Dosage: 9 MILLIGRAM, QD
  13. PENTASA [Concomitant]
     Active Substance: MESALAMINE
  14. CONCERTA [Concomitant]
     Active Substance: METHYLPHENIDATE HYDROCHLORIDE
     Dosage: 27 MILLIGRAM, QD
  15. LYRICA [Concomitant]
     Active Substance: PREGABALIN
     Dosage: 25 MILLIGRAM, BID
  16. PERCOCET [Concomitant]
     Active Substance: ACETAMINOPHEN\OXYCODONE HYDROCHLORIDE
  17. SENOKOT [Concomitant]
     Active Substance: SENNOSIDES
  18. IMODIUM [Concomitant]
     Active Substance: LOPERAMIDE HYDROCHLORIDE
  19. TYLENOL [Concomitant]
     Active Substance: ACETAMINOPHEN
  20. LACTULOSE [Concomitant]
     Active Substance: LACTULOSE
  21. MELATONIN [Concomitant]
     Active Substance: MELATONIN
  22. LIPITOR [Concomitant]
     Active Substance: ATORVASTATIN CALCIUM
     Dosage: 10 MILLIGRAM, QD
  23. DEXILANT [Concomitant]
     Active Substance: DEXLANSOPRAZOLE
  24. VITAMIN D3 [Concomitant]
     Active Substance: CHOLECALCIFEROL
  25. Statex [Concomitant]
  26. LOPERAMIDE [Concomitant]
     Active Substance: LOPERAMIDE
  27. ATORVASTATIN [Concomitant]
     Active Substance: ATORVASTATIN
  28. AVENTYL [Concomitant]
     Active Substance: NORTRIPTYLINE HYDROCHLORIDE
  29. SENNOSIDES [Concomitant]
     Active Substance: SENNOSIDES

REACTIONS (48)
  - Crohn^s disease [Unknown]
  - Major depression [Unknown]
  - Subclavian artery stenosis [Unknown]
  - Choking [Unknown]
  - Dyschezia [Unknown]
  - Psoriasis [Unknown]
  - Abdominal tenderness [Unknown]
  - Abdominal pain upper [Not Recovered/Not Resolved]
  - Diarrhoea [Unknown]
  - Sensitive skin [Unknown]
  - Influenza like illness [Unknown]
  - Gastrointestinal disorder [Unknown]
  - Feeling hot [Unknown]
  - Stress [Unknown]
  - Post-traumatic stress disorder [Unknown]
  - Grief reaction [Unknown]
  - Blood pressure difference of extremities [Unknown]
  - Product dose omission issue [Unknown]
  - Product administration error [Unknown]
  - Insomnia [Unknown]
  - Frequent bowel movements [Unknown]
  - Skin disorder [Unknown]
  - Emotional disorder [Unknown]
  - Nervous system disorder [Unknown]
  - General physical health deterioration [Unknown]
  - Burning mouth syndrome [Unknown]
  - Pain [Unknown]
  - Cardiac disorder [Unknown]
  - Alopecia [Unknown]
  - Skin exfoliation [Unknown]
  - Eye disorder [Unknown]
  - Anal incontinence [Unknown]
  - Nasal dryness [Unknown]
  - Dry mouth [Unknown]
  - Drug ineffective [Unknown]
  - Injection site bruising [Unknown]
  - Weight decreased [Unknown]
  - Malaise [Not Recovered/Not Resolved]
  - Dyspnoea [Unknown]
  - Abdominal pain [Unknown]
  - Rhinorrhoea [Unknown]
  - Decreased appetite [Unknown]
  - Flatulence [Unknown]
  - Constipation [Unknown]
  - Arthralgia [Unknown]
  - Nasopharyngitis [Unknown]
  - Headache [Unknown]
  - Fatigue [Not Recovered/Not Resolved]
